FAERS Safety Report 12895082 (Version 1)
Quarter: 2016Q4

REPORT INFORMATION
  Report Type: Spontaneous
  Country: US (occurrence: US)
  Receive Date: 20161028
  Receipt Date: 20161028
  Transmission Date: 20170207
  Serious: Yes (Life-Threatening, Hospitalization)
  Sender: FDA-Public Use
  Company Number: None

PATIENT
  Age: 68 Year
  Sex: Male
  Weight: 80.6 kg

DRUGS (2)
  1. WARFARIN [Suspect]
     Active Substance: WARFARIN
     Indication: ATRIAL FIBRILLATION
     Dosage: 7.5 MG OTHER PO
     Route: 048
     Dates: start: 20150924, end: 20161003
  2. WARFARIN [Suspect]
     Active Substance: WARFARIN
     Indication: MITRAL VALVE INCOMPETENCE
     Dosage: 7.5 MG OTHER PO
     Route: 048
     Dates: start: 20150924, end: 20161003

REACTIONS (3)
  - Subdural haematoma [None]
  - Haemorrhage intracranial [None]
  - Headache [None]

NARRATIVE: CASE EVENT DATE: 20161003
